FAERS Safety Report 24014610 (Version 2)
Quarter: 2024Q3

REPORT INFORMATION
  Report Type: Report from Study
  Country: US (occurrence: US)
  Receive Date: 20240626
  Receipt Date: 20240730
  Transmission Date: 20241016
  Serious: Yes (Hospitalization)
  Sender: GILEAD
  Company Number: US-GILEAD-2024-0677252

PATIENT
  Sex: Female

DRUGS (2)
  1. AZTREONAM LYSINE [Suspect]
     Active Substance: AZTREONAM LYSINE
     Indication: Pseudomonas infection
     Dosage: 75 MG, TID [75 MG, 28 DAYS ON/28 DAYS OFF, QTY OF 84 ]
     Route: 065
  2. AZTREONAM LYSINE [Suspect]
     Active Substance: AZTREONAM LYSINE
     Indication: Chronic obstructive pulmonary disease
     Dosage: INHALE THE CONTENTS OF 1 VIAL THREE TIMES DAILY VIA NEBULIZER FOR 28 DAYS ON, 28 DAYS OFF.
     Route: 055
     Dates: start: 20240614

REACTIONS (6)
  - Body temperature abnormal [Recovered/Resolved]
  - Cough [Recovered/Resolved]
  - Productive cough [Not Recovered/Not Resolved]
  - Muscular weakness [Not Recovered/Not Resolved]
  - Off label use [Not Recovered/Not Resolved]
  - Product dose omission issue [Unknown]
